FAERS Safety Report 7903679-2 (Version None)
Quarter: 2011Q4

REPORT INFORMATION
  Report Type: 
  Country: None (occurrence: None)
  Receive Date: 20111109
  Receipt Date: 20111031
  Transmission Date: 20120403
  Serious: Yes (Death)
  Sender: FDA-Public Use
  Company Number: JP-AMGEN-JPNCT2011032722

PATIENT
  Age: 55 Year
  Sex: Female
  Weight: 47 kg

DRUGS (15)
  1. PANITUMUMAB [Suspect]
     Indication: COLORECTAL CANCER
     Dosage: 6 MG/KG, Q2WK
     Route: 041
     Dates: start: 20101101, end: 20110112
  2. FLUOROURACIL [Concomitant]
     Dosage: 2750 MG, Q2WK
     Route: 041
     Dates: start: 20101101, end: 20101222
  3. TOPOTECAN [Suspect]
     Dosage: 100 MG, Q2WK
     Route: 041
     Dates: start: 20101222, end: 20101222
  4. LEVOLEUCOVORIN CALCIUM [Concomitant]
     Indication: COLORECTAL CANCER
     Dosage: 250 MG, Q2WK
     Route: 041
     Dates: start: 20101101, end: 20101222
  5. TOPOTECAN [Suspect]
     Indication: COLORECTAL CANCER
     Dosage: 160 MG, Q2WK
     Route: 041
     Dates: start: 20101101
  6. ANTIHISTAMINES [Concomitant]
     Indication: PROPHYLAXIS
     Dosage: UNK
     Route: 065
  7. FLUOROURACIL [Concomitant]
     Indication: COLORECTAL CANCER
     Dosage: 400 MG, Q2WK
     Route: 040
     Dates: start: 20101101, end: 20101222
  8. DEPAS [Concomitant]
     Dosage: UNK
     Route: 048
  9. OXYCONTIN [Concomitant]
     Dosage: UNK
     Route: 048
  10. TOPOTECAN [Suspect]
     Dosage: 130 MG, Q2WK
     Route: 041
  11. CORTICOSTEROIDS [Concomitant]
     Indication: PROPHYLAXIS
     Dosage: UNK
     Route: 065
  12. FLUOROURACIL [Concomitant]
     Dosage: 400 MG, UNK
     Route: 040
     Dates: start: 20110112, end: 20110112
  13. FLUOROURACIL [Concomitant]
     Dosage: 2750 MG, UNK
     Route: 041
     Dates: start: 20110112, end: 20110112
  14. LEVOLEUCOVORIN CALCIUM [Concomitant]
     Dosage: 250 MG, UNK
     Route: 041
     Dates: start: 20110112, end: 20110112
  15. JU-KAMA [Concomitant]
     Dosage: UNK
     Route: 048

REACTIONS (3)
  - COLORECTAL CANCER [None]
  - DECREASED APPETITE [None]
  - DRY SKIN [None]
